FAERS Safety Report 16988845 (Version 1)
Quarter: 2019Q4

REPORT INFORMATION
  Report Type: Spontaneous
  Country: IE (occurrence: IE)
  Receive Date: 20191104
  Receipt Date: 20191104
  Transmission Date: 20200122
  Serious: Yes (Other)
  Sender: FDA-Public Use
  Company Number: IE-AMERICAN REGENT INC-2019002384

PATIENT
  Age: 33 Year
  Sex: Male

DRUGS (1)
  1. FERINJECT [Suspect]
     Active Substance: FERRIC CARBOXYMALTOSE
     Indication: ANAEMIA
     Dosage: STAT (1000 MILLIGRAM)
     Dates: start: 20190701, end: 20190701

REACTIONS (3)
  - Skin discolouration [Unknown]
  - Infusion site extravasation [Unknown]
  - Infusion site swelling [Unknown]

NARRATIVE: CASE EVENT DATE: 20190701
